FAERS Safety Report 17301229 (Version 2)
Quarter: 2020Q1

REPORT INFORMATION
  Report Type: Spontaneous
  Country: DE (occurrence: DE)
  Receive Date: 20200122
  Receipt Date: 20200214
  Transmission Date: 20200409
  Serious: Yes (Death)
  Sender: FDA-Public Use
  Company Number: NVSC2020DE014814

PATIENT
  Age: 61 Year
  Sex: Male
  Weight: 66 kg

DRUGS (4)
  1. AVASTIN [Suspect]
     Active Substance: BEVACIZUMAB
     Indication: NON-SMALL CELL LUNG CANCER
     Dosage: 950 MG, TIW
     Route: 042
     Dates: start: 20190905, end: 20190929
  2. TECENTRIQ [Suspect]
     Active Substance: ATEZOLIZUMAB
     Indication: NON-SMALL CELL LUNG CANCER
     Dosage: 1200 MG, TIW
     Route: 042
     Dates: start: 20190905, end: 20190926
  3. PACLITAXEL. [Suspect]
     Active Substance: PACLITAXEL
     Indication: NON-SMALL CELL LUNG CANCER
     Dosage: 309 MG, TIW
     Route: 042
     Dates: start: 20190905, end: 20190926
  4. CARBOPLATIN. [Suspect]
     Active Substance: CARBOPLATIN
     Indication: NON-SMALL CELL LUNG CANCER
     Dosage: 620 MG, TIW
     Route: 042
     Dates: start: 20190905, end: 20190926

REACTIONS (1)
  - Infection [Fatal]

NARRATIVE: CASE EVENT DATE: 20191010
